FAERS Safety Report 4689601-3 (Version None)
Quarter: 2005Q2

REPORT INFORMATION
  Report Type: 
  Country: None (occurrence: None)
  Receive Date: 20050613
  Receipt Date: 20050613
  Transmission Date: 20051028
  Serious: Yes (Other)
  Sender: FDA-Public Use
  Company Number: None

PATIENT
  Sex: Male
  Weight: 77 kg

DRUGS (2)
  1. FLUOROURACIL [Suspect]
     Indication: ANAL CANCER
     Dosage: 1000 MG/M2/DY GIVEN AS CONTINUOUS INFUSION IN 5% DEXTROSE OR 0.5 NS DAILY FOR 96 HRS CONTINUOUSLY ST
     Dates: start: 20050517
  2. MITOMYCIN [Suspect]
     Indication: ANAL CANCER
     Dosage: 10 MG/M2/DAY BY CONTINUOUS INFUSION ON DAYS 1-4 AND 29-30
     Dates: start: 20050517

REACTIONS (1)
  - ILEUS [None]
